FAERS Safety Report 9271902 (Version 2)
Quarter: 2013Q2

REPORT INFORMATION
  Report Type: Spontaneous
  Country: US (occurrence: US)
  Receive Date: 20130506
  Receipt Date: 20130628
  Transmission Date: 20140414
  Serious: No
  Sender: FDA-Public Use
  Company Number: US-PFIZER INC-2013137850

PATIENT
  Age: 51 Year
  Sex: Female
  Weight: 72.56 kg

DRUGS (4)
  1. ADVIL MIGRAINE [Suspect]
     Indication: MIGRAINE
     Dosage: 400 MG, AS NEEDED
     Route: 048
     Dates: end: 2013
  2. CYTOMEL [Concomitant]
     Indication: THYROID DISORDER
     Dosage: 5 MCG, DAILY
  3. SYNTHROID [Concomitant]
     Indication: THYROID DISORDER
     Dosage: 0.075 MG, DAILY
  4. CHILDREN^S ASPIRIN [Concomitant]
     Indication: RESTLESS LEGS SYNDROME
     Dosage: 81 MG, DAILY

REACTIONS (2)
  - Reaction to drug excipients [Unknown]
  - Abdominal discomfort [Not Recovered/Not Resolved]
